FAERS Safety Report 6093277-0 (Version None)
Quarter: 2009Q1

REPORT INFORMATION
  Report Type: 
  Country: None (occurrence: None)
  Receive Date: 20090226
  Receipt Date: 20090217
  Transmission Date: 20090719
  Serious: Yes (Hospitalization)
  Sender: FDA-Public Use
  Company Number: US-NOVOPROD-284266

PATIENT
  Age: 12 Year
  Sex: Female

DRUGS (1)
  1. NORDITROPIN NORDIFLEX [Suspect]
     Indication: DRUG USE FOR UNKNOWN INDICATION
     Dosage: UNKNOWN
     Route: 058
     Dates: start: 20060320

REACTIONS (3)
  - INFLUENZA LIKE ILLNESS [None]
  - PHARYNGITIS STREPTOCOCCAL [None]
  - PNEUMONIA [None]
